FAERS Safety Report 5331266-1 (Version None)
Quarter: 2007Q2

REPORT INFORMATION
  Report Type: 
  Country: None (occurrence: None)
  Receive Date: 20070522
  Receipt Date: 20070516
  Transmission Date: 20071010
  Serious: Yes (Life-Threatening, Hospitalization, Disabling, Other)
  Sender: FDA-Public Use
  Company Number: JP-ELI_LILLY_AND_COMPANY-JP200704001584

PATIENT
  Age: 32 Year
  Sex: Male

DRUGS (13)
  1. OLANZAPINE [Suspect]
     Indication: SCHIZOPHRENIA
     Dosage: 10 MG, DAILY (1/D)
     Route: 048
     Dates: start: 20060925, end: 20060926
  2. OLANZAPINE [Suspect]
     Dosage: 20 MG, DAILY (1/D)
     Route: 048
     Dates: start: 20060927, end: 20070324
  3. LULLAN [Concomitant]
     Indication: SCHIZOPHRENIA
     Dosage: 24 MG, DAILY (1/D)
     Route: 048
     Dates: start: 20061101, end: 20061104
  4. LULLAN [Concomitant]
     Dosage: 32 MG, DAILY (1/D)
     Route: 048
     Dates: start: 20061105, end: 20061105
  5. LULLAN [Concomitant]
     Dosage: 48 MG, DAILY (1/D)
     Route: 048
     Dates: start: 20061106, end: 20070324
  6. RISPERDAL [Concomitant]
     Indication: SCHIZOPHRENIA
     Dosage: 6 MG, DAILY (1/D)
     Route: 048
     Dates: start: 20061110, end: 20061203
  7. RISPERDAL [Concomitant]
     Dosage: 8 MG, DAILY (1/D)
     Route: 048
     Dates: start: 20061204, end: 20070118
  8. RISPERDAL [Concomitant]
     Dosage: 12 MG, DAILY (1/D)
     Route: 048
     Dates: start: 20070119, end: 20070324
  9. CARBAMAZEPINE [Concomitant]
     Indication: TEMPORAL LOBE EPILEPSY
     Dosage: 800 MG, DAILY (1/D)
     Route: 048
  10. BIPERIDEN HYDROCHLORIDE TAB [Concomitant]
     Indication: PROPHYLAXIS
     Dosage: 2 MG, DAILY (1/D)
     Route: 048
     Dates: end: 20070324
  11. AMOBAN [Concomitant]
     Indication: INSOMNIA
     Dosage: 7.5 MG, DAILY (1/D)
     Route: 048
     Dates: start: 20060920, end: 20070324
  12. NITRAZEPAM [Concomitant]
     Indication: INSOMNIA
     Dosage: 10 MG, DAILY (1/D)
     Route: 048
     Dates: start: 20060927, end: 20070324
  13. FLUNITRAZEPAM [Concomitant]
     Indication: INSOMNIA
     Dosage: 2 MG, DAILY (1/D)
     Route: 048
     Dates: start: 20061010, end: 20070324

REACTIONS (5)
  - BLOOD GLUCOSE DECREASED [None]
  - DISUSE SYNDROME [None]
  - GASTROENTERITIS STAPHYLOCOCCAL [None]
  - NEUROLEPTIC MALIGNANT SYNDROME [None]
  - SEPSIS [None]
